FAERS Safety Report 20044621 (Version 4)
Quarter: 2022Q2

REPORT INFORMATION
  Report Type: Report from Study
  Country: IN (occurrence: IN)
  Receive Date: 20211108
  Receipt Date: 20220419
  Transmission Date: 20220721
  Serious: Yes (Hospitalization)
  Sender: FDA-Public Use
  Company Number: IN-PFIZER INC-202101447069

PATIENT
  Age: 49 Year
  Sex: Male
  Weight: 51.5 kg

DRUGS (6)
  1. DACOMITINIB [Suspect]
     Active Substance: DACOMITINIB
     Indication: Non-small cell lung cancer metastatic
     Dosage: 45 MG, 1X/DAY (PER DAY)
     Route: 048
     Dates: start: 20210527, end: 20210810
  2. DACOMITINIB [Suspect]
     Active Substance: DACOMITINIB
     Dosage: 30 MG, 1X/DAY (PER DAY)
     Route: 048
     Dates: start: 20210820, end: 20211025
  3. AMOXICILLIN [Concomitant]
     Active Substance: AMOXICILLIN
     Indication: Antiallergic therapy
     Dosage: 1000 MG, 2X/DAY (BID)
     Route: 042
     Dates: start: 20211025, end: 20211027
  4. AMOXICILLIN [Concomitant]
     Active Substance: AMOXICILLIN
     Indication: Blood creatinine increased
  5. CLAVULANIC ACID [Concomitant]
     Active Substance: CLAVULANIC ACID
     Indication: Supportive care
     Dosage: 200 MG, 2X/DAY
     Route: 042
     Dates: start: 20211025, end: 20211027
  6. CLAVULANIC ACID [Concomitant]
     Active Substance: CLAVULANIC ACID
     Indication: Blood creatinine increased

REACTIONS (1)
  - Acute kidney injury [Recovered/Resolved]

NARRATIVE: CASE EVENT DATE: 20211025
